FAERS Safety Report 9684008 (Version 8)
Quarter: 2016Q1

REPORT INFORMATION
  Report Type: Report from Study
  Country: VE (occurrence: VE)
  Receive Date: 20131112
  Receipt Date: 20160309
  Transmission Date: 20160526
  Serious: Yes (Hospitalization, Other)
  Sender: FDA-Public Use
  Company Number: PHHY2011VE32664

PATIENT
  Age: 73 Year
  Sex: Female

DRUGS (15)
  1. XOLAIR [Suspect]
     Active Substance: OMALIZUMAB
     Dosage: 150 MG, QMO
     Route: 058
     Dates: start: 201401
  2. ATORVASTATIN [Concomitant]
     Active Substance: ATORVASTATIN
     Indication: BLOOD CHOLESTEROL INCREASED
     Dosage: UNK UNK, QD
     Route: 048
  3. XOLAIR [Suspect]
     Active Substance: OMALIZUMAB
     Indication: ASTHMA
     Dosage: 300 MG, QMO
     Route: 058
     Dates: start: 20110211
  4. FORADIL [Suspect]
     Active Substance: FORMOTEROL FUMARATE
     Indication: ASTHMA
     Dosage: 12 UG, Q8H
     Route: 055
     Dates: start: 201109
  5. FORADIL [Suspect]
     Active Substance: FORMOTEROL FUMARATE
     Dosage: 4 INHALATION DAILY
     Route: 048
     Dates: start: 201203
  6. MIFLONIDE [Suspect]
     Active Substance: BUDESONIDE
     Dosage: 4 DF, UNK
     Route: 048
     Dates: start: 201203
  7. ALDACTAZIDA [Concomitant]
     Indication: TENSION
     Route: 048
  8. SPIRIVA [Concomitant]
     Active Substance: TIOTROPIUM BROMIDE MONOHYDRATE
     Indication: ASTHMA
     Dosage: 18 UG, DAILY
     Route: 055
     Dates: start: 2010
  9. FORADIL [Suspect]
     Active Substance: FORMOTEROL FUMARATE
     Dosage: 12 UG, QD
     Route: 055
  10. XOLAIR [Suspect]
     Active Substance: OMALIZUMAB
     Indication: CHRONIC OBSTRUCTIVE PULMONARY DISEASE
     Dosage: 300 MG, QMO
     Route: 058
     Dates: start: 20111211
  11. BERODUAL [Concomitant]
     Active Substance: FENOTEROL HYDROBROMIDE\IPRATROPIUM BROMIDE
     Indication: ASTHMA
     Dosage: UKN, PRN
     Route: 055
     Dates: start: 201109
  12. XOLAIR [Suspect]
     Active Substance: OMALIZUMAB
     Dosage: 300 MG, QMO
     Route: 058
     Dates: start: 201203
  13. ONBREZ [Suspect]
     Active Substance: INDACATEROL
     Indication: ASTHMA
     Dosage: 800 MG, DAILY
     Route: 055
     Dates: start: 201103, end: 201109
  14. MIFLONIDE [Suspect]
     Active Substance: BUDESONIDE
     Indication: ASTHMA
     Dosage: 400 MG, Q8H
     Route: 055
     Dates: start: 201109
  15. EUTHYROX [Concomitant]
     Active Substance: LEVOTHYROXINE SODIUM
     Indication: THYROID DISORDER
     Dosage: 50 MG, UNK
     Route: 048

REACTIONS (13)
  - Asthmatic crisis [Recovering/Resolving]
  - Drug ineffective [Unknown]
  - Dyspnoea [Unknown]
  - Chest discomfort [Not Recovered/Not Resolved]
  - Malaise [Not Recovered/Not Resolved]
  - Anxiety [Unknown]
  - Dizziness [Unknown]
  - Oxygen consumption increased [Unknown]
  - Cough [Not Recovered/Not Resolved]
  - Choking [Unknown]
  - Asthma [Not Recovered/Not Resolved]
  - General physical health deterioration [Unknown]
  - Influenza [Not Recovered/Not Resolved]

NARRATIVE: CASE EVENT DATE: 201103
